FAERS Safety Report 6859472-5 (Version None)
Quarter: 2010Q3

REPORT INFORMATION
  Report Type: 
  Country: None (occurrence: None)
  Receive Date: 20100719
  Receipt Date: 20080227
  Transmission Date: 20110219
  Serious: No
  Sender: FDA-Public Use
  Company Number: US-PFIZER INC-2008019917

PATIENT
  Sex: Male

DRUGS (14)
  1. CHANTIX [Suspect]
     Indication: SMOKING CESSATION THERAPY
     Dates: start: 20080212
  2. ABILIFY [Concomitant]
     Indication: BIPOLAR DISORDER
  3. ALAVERT [Concomitant]
  4. ATRIPLA [Concomitant]
  5. MULTI-VITAMINS [Concomitant]
  6. GEMFIBROZIL [Concomitant]
  7. LEVOTHYROXINE SODIUM [Concomitant]
     Indication: HYPOTHYROIDISM
  8. LORAZEPAM [Concomitant]
  9. OMEGA-3 MARINE TRIGLYCERIDES [Concomitant]
  10. PRILOSEC [Concomitant]
  11. PROMETHAZINE [Concomitant]
  12. PROPRANOLOL [Concomitant]
  13. SEROQUEL [Concomitant]
     Indication: BIPOLAR DISORDER
  14. SODIUM BICARBONATE [Concomitant]
     Indication: BLOOD PH DECREASED

REACTIONS (3)
  - ABNORMAL DREAMS [None]
  - INSOMNIA [None]
  - WEIGHT INCREASED [None]
